FAERS Safety Report 4277897-1 (Version None)
Quarter: 2004Q1

REPORT INFORMATION
  Report Type: 
  Country: None (occurrence: None)
  Receive Date: 20040122
  Receipt Date: 20040122
  Transmission Date: 20041129
  Serious: Yes (Other)
  Sender: FDA-Public Use
  Company Number: None

PATIENT
  Sex: Female

DRUGS (1)
  1. DILTIAZEM HCL [Suspect]
     Indication: BLOOD PRESSURE ABNORMAL
     Dosage: 60MG  4 TO 5 X D   ORAL
     Route: 048
     Dates: start: 20020102, end: 20040121

REACTIONS (2)
  - BLOOD PRESSURE INCREASED [None]
  - PHARMACEUTICAL PRODUCT COMPLAINT [None]
